FAERS Safety Report 23259700 (Version 3)
Quarter: 2024Q4

REPORT INFORMATION
  Report Type: Spontaneous
  Country: US (occurrence: US)
  Receive Date: 20231204
  Receipt Date: 20241216
  Transmission Date: 20250115
  Serious: Yes (Other)
  Sender: PFIZER
  Company Number: US-PFIZER INC-PV202300195583

PATIENT
  Age: 72 Year
  Sex: Female

DRUGS (3)
  1. IBRANCE [Suspect]
     Active Substance: PALBOCICLIB
     Indication: Breast cancer female
     Dosage: ONCE DAILY FOR 21 DAYS ON, FOLLOWED BY 7 DAYS OFF WITH OR WITHOUT FOOD
     Route: 048
  2. LISINOPRIL [Concomitant]
     Active Substance: LISINOPRIL
     Indication: Hypertension
     Dosage: 30 MG, 1X/DAY
  3. METOPROLOL [Concomitant]
     Active Substance: METOPROLOL
     Indication: Arrhythmia
     Dosage: 25 MG, 1X/DAY

REACTIONS (1)
  - Thrombosis [Unknown]
